FAERS Safety Report 4450047-4 (Version None)
Quarter: 2004Q3

REPORT INFORMATION
  Report Type: 
  Country: None (occurrence: None)
  Receive Date: 20040915
  Receipt Date: 20040909
  Transmission Date: 20050211
  Serious: Yes (Hospitalization)
  Sender: FDA-Public Use
  Company Number: US-BRISTOL-MYERS SQUIBB COMPANY-12697488

PATIENT
  Age: 72 Year
  Sex: Female

DRUGS (1)
  1. ERBITUX [Suspect]
     Dosage: 4TH DOSE
     Dates: start: 20040801, end: 20040801

REACTIONS (1)
  - MYOCARDIAL INFARCTION [None]
